FAERS Safety Report 10738428 (Version 2)
Quarter: 2015Q1

REPORT INFORMATION
  Report Type: Spontaneous
  Country: BR (occurrence: BR)
  Receive Date: 20150126
  Receipt Date: 20150126
  Transmission Date: 20150721
  Serious: Yes (Hospitalization, Other)
  Sender: FDA-Public Use
  Company Number: BR-WATSON-2015-00665

PATIENT
  Age: 12 Year
  Sex: Female
  Weight: 35 kg

DRUGS (3)
  1. PHENYTOIN (AMALLC) [Interacting]
     Active Substance: PHENYTOIN
     Indication: EPILEPSY
     Dosage: 2 CAPSULES OF 100 MG 12/12 HOURS
     Route: 048
  2. VALPROIC ACID (UNKNOWN) [Suspect]
     Active Substance: VALPROIC ACID
     Indication: EPILEPSY
     Dosage: 300 MG IN THE MORNING AND 900 MG AT NIGHT
     Route: 065
  3. LAMOTRIGINE. [Concomitant]
     Active Substance: LAMOTRIGINE
     Indication: EPILEPSY
     Dosage: 100 MG 12/12 H
     Route: 065

REACTIONS (4)
  - Potentiating drug interaction [Recovered/Resolved]
  - Toxicity to various agents [Recovered/Resolved]
  - Cerebellar syndrome [Recovered/Resolved]
  - Anticonvulsant drug level above therapeutic [Unknown]
